FAERS Safety Report 13720802 (Version 3)
Quarter: 2017Q3

REPORT INFORMATION
  Report Type: Report from Study
  Country: None (occurrence: CA)
  Receive Date: 20170706
  Receipt Date: 20170921
  Transmission Date: 20171127
  Serious: Yes (Other)
  Sender: FDA-Public Use
  Company Number: CA-ABBVIE-17K-028-1988183-00

PATIENT
  Age: 48 Year
  Sex: Female

DRUGS (1)
  1. HUMIRA [Suspect]
     Active Substance: ADALIMUMAB
     Indication: CROHN^S DISEASE
     Route: 058
     Dates: start: 20151106, end: 20170630

REACTIONS (10)
  - Device related sepsis [Not Recovered/Not Resolved]
  - Fear of death [Not Recovered/Not Resolved]
  - Hip fracture [Unknown]
  - Infection [Not Recovered/Not Resolved]
  - Fall [Recovered/Resolved]
  - Vomiting [Not Recovered/Not Resolved]
  - Malnutrition [Not Recovered/Not Resolved]
  - Decreased appetite [Not Recovered/Not Resolved]
  - Diarrhoea [Not Recovered/Not Resolved]
  - Weight decreased [Not Recovered/Not Resolved]

NARRATIVE: CASE EVENT DATE: 201611
